FAERS Safety Report 18940616 (Version 1)
Quarter: 2021Q1

REPORT INFORMATION
  Report Type: Spontaneous
  Country: CA (occurrence: CA)
  Receive Date: 20210225
  Receipt Date: 20210225
  Transmission Date: 20210420
  Serious: Yes (Life-Threatening)
  Sender: FDA-Public Use
  Company Number: CA-ROCHE-2775319

PATIENT
  Age: 57 Year
  Sex: Female

DRUGS (3)
  1. CLOPIDOGREL [Concomitant]
     Active Substance: CLOPIDOGREL BISULFATE
  2. TNKASE [Suspect]
     Active Substance: TENECTEPLASE
     Indication: ACUTE MYOCARDIAL INFARCTION
     Route: 065
  3. ASA [Concomitant]
     Active Substance: ASPIRIN

REACTIONS (7)
  - Brain herniation [Unknown]
  - Haemorrhage intracranial [Unknown]
  - Hemiparesis [Unknown]
  - Subdural haematoma [Unknown]
  - Decompressive craniectomy [Unknown]
  - Eye movement disorder [Unknown]
  - Vomiting [Unknown]
